FAERS Safety Report 17193606 (Version 1)
Quarter: 2019Q4

REPORT INFORMATION
  Report Type: Spontaneous
  Country: RU (occurrence: RU)
  Receive Date: 20191223
  Receipt Date: 20191223
  Transmission Date: 20200122
  Serious: Yes (Hospitalization, Disabling)
  Sender: FDA-Public Use
  Company Number: RU-CELGENEUS-RUS-20191207182

PATIENT
  Age: 49 Year
  Sex: Female
  Weight: 64 kg

DRUGS (8)
  1. APIXABAN [Concomitant]
     Active Substance: APIXABAN
     Indication: HYPERCOAGULATION
     Dosage: 10 MILLIGRAM
     Route: 048
     Dates: start: 20191126, end: 20191213
  2. SULODEXIDE [Concomitant]
     Active Substance: SULODEXIDE
     Indication: HYPERCOAGULATION
     Dosage: LE TWICE A DAY
     Route: 048
     Dates: start: 20191126, end: 20191201
  3. LENALIDOMIDE [Suspect]
     Active Substance: LENALIDOMIDE
     Indication: PLASMA CELL MYELOMA
     Route: 048
     Dates: start: 20191107, end: 20191127
  4. ALLOPURINOL. [Concomitant]
     Active Substance: ALLOPURINOL
     Indication: HYPOURICAEMIA
     Dosage: 10 MILLIGRAM
     Route: 048
     Dates: start: 20191101, end: 20191213
  5. CYCLOPHOSPHAMIDE. [Concomitant]
     Active Substance: CYCLOPHOSPHAMIDE
     Indication: PROPHYLAXIS
     Dosage: 500 MILLIGRAM
     Route: 041
     Dates: start: 20191107, end: 20191127
  6. SULODEXIDE [Concomitant]
     Active Substance: SULODEXIDE
     Dosage: LE TWICE A DAY
     Route: 048
     Dates: start: 20191211, end: 20191213
  7. LENALIDOMIDE [Suspect]
     Active Substance: LENALIDOMIDE
     Indication: AMYLOIDOSIS
  8. ATORVASTATIN [Concomitant]
     Active Substance: ATORVASTATIN
     Indication: PROPHYLAXIS
     Dosage: 10 MILLIGRAM
     Route: 048
     Dates: start: 20191101, end: 20191213

REACTIONS (1)
  - Takayasu^s arteritis [Not Recovered/Not Resolved]

NARRATIVE: CASE EVENT DATE: 20191123
